FAERS Safety Report 19650283 (Version 2)
Quarter: 2021Q3

REPORT INFORMATION
  Report Type: Spontaneous
  Country: FR (occurrence: FR)
  Receive Date: 20210802
  Receipt Date: 20210928
  Transmission Date: 20211014
  Serious: Yes (Hospitalization, Other)
  Sender: FDA-Public Use
  Company Number: NVSC2021FR168470

PATIENT
  Age: 30 Year
  Sex: Male
  Weight: 100.5 kg

DRUGS (12)
  1. KEPPRA [Concomitant]
     Active Substance: LEVETIRACETAM
     Indication: PRODUCT USED FOR UNKNOWN INDICATION
     Dosage: 1 CP X 2 PAR JOUR
     Route: 065
     Dates: start: 20210520
  2. METRONIDAZOLE. [Concomitant]
     Active Substance: METRONIDAZOLE
     Indication: BRAIN ABSCESS
     Dosage: 500 MG X 3 PAR JOUR
     Route: 065
     Dates: start: 20210526
  3. POSACONAZOLE [Concomitant]
     Active Substance: POSACONAZOLE
     Indication: ASPERGILLUS INFECTION
     Dosage: 300 MG LE SOIR
     Route: 065
     Dates: start: 20210519
  4. SOLIRIS [Concomitant]
     Active Substance: ECULIZUMAB
     Indication: PRODUCT USED FOR UNKNOWN INDICATION
     Dosage: 900 MG LE 20/05 PUIS 1200 MG LE 28/05 ET LE 04/06
     Route: 065
     Dates: start: 20210520
  5. BACTRIM [Concomitant]
     Active Substance: SULFAMETHOXAZOLE\TRIMETHOPRIM
     Indication: BRAIN ABSCESS
     Dosage: UNK
     Route: 065
     Dates: start: 20210526
  6. CICLOSPORIN [Suspect]
     Active Substance: CYCLOSPORINE
     Indication: PROPHYLAXIS
     Dosage: UNK
     Route: 065
     Dates: start: 202103, end: 20210517
  7. MYCOPHENOLATE SODIUM [Concomitant]
     Active Substance: MYCOPHENOLATE SODIUM
     Indication: GRAFT VERSUS HOST DISEASE
     Dosage: UNK
     Route: 065
     Dates: start: 202105, end: 20210615
  8. CELLCEPT [Concomitant]
     Active Substance: MYCOPHENOLATE MOFETIL\MYCOPHENOLATE MOFETIL HYDROCHLORIDE
     Indication: GRAFT VERSUS HOST DISEASE
     Dosage: UNK
     Route: 065
     Dates: end: 202105
  9. LETERMOVIR [Concomitant]
     Active Substance: LETERMOVIR
     Indication: PRODUCT USED FOR UNKNOWN INDICATION
     Dosage: 240 MG, QD (240 MG/J)
     Route: 065
     Dates: start: 20210512
  10. CEFOTAXIME [Concomitant]
     Active Substance: CEFOTAXIME SODIUM
     Indication: BRAIN ABSCESS
     Dosage: 4 G TOUTES LES 6 HEURES
     Route: 065
     Dates: start: 20210526
  11. ACICLOVIR [Concomitant]
     Active Substance: ACYCLOVIR
     Indication: MENINGOENCEPHALITIS HERPETIC
     Dosage: UNK
     Route: 065
     Dates: start: 20210517, end: 20210519
  12. TEICOPLANINE [Concomitant]
     Active Substance: TEICOPLANIN
     Indication: PRODUCT USED FOR UNKNOWN INDICATION
     Dosage: UNK
     Route: 065
     Dates: start: 20210518, end: 20210530

REACTIONS (2)
  - Thrombotic microangiopathy [Recovered/Resolved]
  - Pancytopenia [Recovering/Resolving]

NARRATIVE: CASE EVENT DATE: 20210516
